FAERS Safety Report 16025404 (Version 3)
Quarter: 2019Q3

REPORT INFORMATION
  Report Type: Report from Study
  Country: None (occurrence: US)
  Receive Date: 20190301
  Receipt Date: 20190820
  Transmission Date: 20191004
  Serious: Yes (Other)
  Sender: FDA-Public Use
  Company Number: US-ABBVIE-19K-163-2681763-00

PATIENT
  Age: 77 Year
  Sex: Female

DRUGS (1)
  1. HUMIRA [Suspect]
     Active Substance: ADALIMUMAB
     Indication: RHEUMATOID ARTHRITIS
     Route: 058

REACTIONS (5)
  - Arterial occlusive disease [Unknown]
  - Malaise [Unknown]
  - Fall [Unknown]
  - Post-traumatic pain [Unknown]
  - Neck surgery [Recovered/Resolved]

NARRATIVE: CASE EVENT DATE: 201902
